FAERS Safety Report 7943998-7 (Version None)
Quarter: 2011Q4

REPORT INFORMATION
  Report Type: 
  Country: None (occurrence: None)
  Receive Date: 20111128
  Receipt Date: 20111122
  Transmission Date: 20120403
  Serious: Yes (Hospitalization, Other)
  Sender: FDA-Public Use
  Company Number: AR-ROCHE-1016591

PATIENT
  Sex: Male

DRUGS (3)
  1. LUCENTIS [Suspect]
     Route: 050
  2. LUCENTIS [Suspect]
     Route: 050
  3. LUCENTIS [Suspect]
     Indication: PRODUCT USED FOR UNKNOWN INDICATION
     Route: 050
     Dates: start: 20101201

REACTIONS (2)
  - BACK PAIN [None]
  - GASTROINTESTINAL DISORDER [None]
